FAERS Safety Report 6599939-0 (Version None)
Quarter: 2010Q1

REPORT INFORMATION
  Report Type: 
  Country: None (occurrence: None)
  Receive Date: 20100224
  Receipt Date: 20100210
  Transmission Date: 20100710
  Serious: Yes (Hospitalization)
  Sender: FDA-Public Use
  Company Number: US-MYLANLABS-2010S1002139

PATIENT
  Age: 52 Year
  Sex: Female
  Weight: 49 kg

DRUGS (24)
  1. PROPOFOL [Suspect]
     Indication: GENERAL ANAESTHESIA
     Route: 055
     Dates: start: 20060701
  2. PROPOFOL [Suspect]
     Route: 055
     Dates: start: 20080601
  3. PROPOFOL [Suspect]
     Dates: start: 20061201
  4. FENTANYL-100 [Suspect]
     Indication: GENERAL ANAESTHESIA
     Dates: start: 20060701
  5. FENTANYL-100 [Suspect]
     Dates: start: 20080601
  6. FENTANYL-100 [Suspect]
     Dates: start: 20061201
  7. ISOFLURANE [Suspect]
     Indication: GENERAL ANAESTHESIA
     Dates: start: 20060701
  8. ISOFLURANE [Suspect]
     Dates: start: 20080601
  9. ISOFLURANE [Suspect]
     Dates: start: 20061201
  10. NITROUS OXIDE [Suspect]
     Indication: GENERAL ANAESTHESIA
     Dates: start: 20060701
  11. NITROUS OXIDE [Suspect]
     Dates: start: 20061201
  12. SUCCINYLCHOLINE CHLORIDE [Suspect]
     Indication: GENERAL ANAESTHESIA
     Dates: start: 20080601
  13. SUCCINYLCHOLINE CHLORIDE [Suspect]
     Dates: start: 20061201
  14. MIDAZOLAM HCL [Suspect]
     Indication: GENERAL ANAESTHESIA
     Dates: start: 20080601
  15. MIDAZOLAM HCL [Suspect]
     Indication: ANAESTHESIA
     Dates: start: 20080601
  16. MIDAZOLAM HCL [Suspect]
     Dates: start: 20061201
  17. MIDAZOLAM HCL [Suspect]
     Dates: start: 20061201
  18. GABAPENTIN [Concomitant]
     Indication: PREMEDICATION
     Dates: start: 20060701
  19. TRAMADOL HCL [Concomitant]
     Indication: PREMEDICATION
     Dates: start: 20060701
  20. DEXTROPROPOXYPHENE HCL W/PARACETAMOL [Concomitant]
     Indication: PREMEDICATION
     Dates: start: 20060701
  21. BUPIVACAINE HCL [Concomitant]
     Indication: ANAESTHESIA
     Dosage: 0.5% CONCENTRATION, CONTINUOUS ADMINISTRATION
     Dates: start: 20060701
  22. PREGABALIN [Concomitant]
     Indication: PREMEDICATION
     Dates: start: 20080601
  23. DULOXETINE HYDROCHLORIDE [Concomitant]
     Indication: PREMEDICATION
     Dates: start: 20080601
  24. HYDROCODONE BITARTRATE + ACETAMINOPHEN [Concomitant]
     Indication: PREMEDICATION
     Dates: start: 20080601

REACTIONS (3)
  - DELAYED RECOVERY FROM ANAESTHESIA [None]
  - OVERDOSE [None]
  - SOMATOFORM DISORDER [None]
